FAERS Safety Report 8459641-7 (Version None)
Quarter: 2012Q2

REPORT INFORMATION
  Report Type: 
  Country: None (occurrence: None)
  Receive Date: 20120622
  Receipt Date: 20120612
  Transmission Date: 20120825
  Serious: Yes (Hospitalization)
  Sender: FDA-Public Use
  Company Number: FR-GLAXOSMITHKLINE-B0807529A

PATIENT
  Sex: Male

DRUGS (10)
  1. DOMPERIDONE [Suspect]
     Indication: PRODUCT USED FOR UNKNOWN INDICATION
     Dosage: 10MG TWICE PER DAY
     Route: 048
     Dates: start: 20120201, end: 20120330
  2. OXYCODONE HCL [Suspect]
     Indication: PRODUCT USED FOR UNKNOWN INDICATION
     Dosage: 5MG TWICE PER DAY
     Route: 048
     Dates: start: 20120307, end: 20120322
  3. ZOPHREN [Suspect]
     Indication: PROPHYLAXIS OF NAUSEA AND VOMITING
     Dosage: 8MCG TWICE PER DAY
     Route: 048
     Dates: start: 20120322, end: 20120325
  4. CISPLATIN [Suspect]
     Indication: CHEMOTHERAPY
     Dosage: 143MG SINGLE DOSE
     Route: 042
     Dates: start: 20120322, end: 20120322
  5. TAXOTERE [Suspect]
     Indication: CHEMOTHERAPY
     Dosage: 144MG SINGLE DOSE
     Route: 042
     Dates: start: 20120322, end: 20120322
  6. POTASSIUM CHLORIDE [Concomitant]
     Route: 048
  7. VERAPAMIL [Suspect]
     Indication: PRODUCT USED FOR UNKNOWN INDICATION
     Dosage: 120MG PER DAY
     Route: 048
     Dates: start: 20120109, end: 20120325
  8. PREDNISOLONE [Suspect]
     Indication: PRODUCT USED FOR UNKNOWN INDICATION
     Dates: start: 20120321, end: 20120323
  9. EMEND [Suspect]
     Indication: PRODUCT USED FOR UNKNOWN INDICATION
     Dosage: 125MG PER DAY
     Route: 048
     Dates: start: 20120322, end: 20120325
  10. AMIODARONE HCL [Concomitant]
     Dosage: 200MG PER DAY
     Route: 048

REACTIONS (3)
  - PANCREATITIS NECROTISING [None]
  - DECREASED APPETITE [None]
  - VOMITING [None]
